FAERS Safety Report 11363771 (Version 1)
Quarter: 2015Q3

REPORT INFORMATION
  Report Type: Spontaneous
  Country: US (occurrence: US)
  Receive Date: 20150811
  Receipt Date: 20150811
  Transmission Date: 20151125
  Serious: Yes (Hospitalization)
  Sender: FDA-Public Use
  Company Number: US-AUROBINDO-AUR-APL-2015-06966

PATIENT
  Age: 62 Year
  Sex: Female

DRUGS (1)
  1. TRIMETHOPRIM+SULFAMETHOXAZOLE [Suspect]
     Active Substance: SULFAMETHOXAZOLE\TRIMETHOPRIM
     Indication: ANIMAL BITE
     Route: 065

REACTIONS (11)
  - Extradural haematoma [Recovered/Resolved]
  - Bone marrow failure [Recovered/Resolved]
  - Mental status changes [Recovered/Resolved]
  - Headache [Recovered/Resolved]
  - Vitamin B12 deficiency [Recovered/Resolved]
  - Dizziness [Recovered/Resolved]
  - Fatigue [Recovered/Resolved]
  - Subdural haematoma [Recovered/Resolved]
  - Balance disorder [Recovered/Resolved]
  - Brain oedema [Recovered/Resolved]
  - Aplastic anaemia [Recovered/Resolved]
